FAERS Safety Report 8825105 (Version 1)
Quarter: 2012Q4

REPORT INFORMATION
  Report Type: 
  Country: US (occurrence: US)
  Receive Date: 20121004
  Receipt Date: 20121004
  Transmission Date: 20130627
  Serious: Yes (Other)
  Sender: FDA-Public Use
  Company Number: US-JNJFOC-20120911841

PATIENT
  Sex: Female
  Weight: 56.7 kg

DRUGS (3)
  1. TRAMADOL HYDROCHLORIDE [Suspect]
     Indication: PAIN
     Dosage: as needed
     Route: 048
  2. SYNTHROID [Concomitant]
     Indication: HYPOTHYROIDISM
     Dosage: every other day
     Route: 048
  3. SYNTHROID [Concomitant]
     Indication: HYPOTHYROIDISM
     Dosage: every other day
     Route: 048

REACTIONS (3)
  - Renal failure [Not Recovered/Not Resolved]
  - Visual impairment [Unknown]
  - Pain [Recovered/Resolved]
